FAERS Safety Report 11825406 (Version 2)
Quarter: 2016Q2

REPORT INFORMATION
  Report Type: Report from Study
  Country: BR (occurrence: BR)
  Receive Date: 20151211
  Receipt Date: 20160516
  Transmission Date: 20160815
  Serious: Yes (Other)
  Sender: FDA-Public Use
  Company Number: BR-ABBVIE-15K-020-1514712-00

PATIENT
  Age: 26 Year
  Sex: Female
  Weight: 46 kg

DRUGS (5)
  1. HUMIRA [Suspect]
     Active Substance: ADALIMUMAB
     Indication: COLITIS ULCERATIVE
     Dosage: WEEK 0, INDUCTION DOSE
     Route: 058
     Dates: start: 20151106, end: 20151106
  2. HUMIRA [Suspect]
     Active Substance: ADALIMUMAB
     Dosage: MAINTAINANCE DOSE
     Route: 058
     Dates: start: 2015, end: 201603
  3. YAZ [Concomitant]
     Active Substance: DROSPIRENONE\ETHINYL ESTRADIOL
     Indication: HORMONE THERAPY
     Route: 048
     Dates: start: 2008, end: 20160504
  4. AZATHIOPRINE. [Concomitant]
     Active Substance: AZATHIOPRINE
     Indication: COLITIS ULCERATIVE
     Dosage: ONE TABLET AND A HALF PER DAY
     Route: 048
     Dates: start: 201604
  5. HUMIRA [Suspect]
     Active Substance: ADALIMUMAB
     Dosage: WEEK 1, INDUCTION DOSE
     Route: 058
     Dates: start: 20151113, end: 20151113

REACTIONS (1)
  - Thrombophlebitis superficial [Recovered/Resolved]

NARRATIVE: CASE EVENT DATE: 20151113
